FAERS Safety Report 10861913 (Version 3)
Quarter: 2024Q3

REPORT INFORMATION
  Report Type: Spontaneous
  Country: JP (occurrence: JP)
  Receive Date: 20150224
  Receipt Date: 20240902
  Transmission Date: 20241016
  Serious: Yes (Death, Other)
  Sender: AMGEN
  Company Number: JP-KYOWAKIRIN-2015JPN-NSP000039

PATIENT
  Age: 81 Year
  Sex: Male

DRUGS (3)
  1. DARBEPOETIN ALFA [Suspect]
     Active Substance: DARBEPOETIN ALFA
     Indication: Myelodysplastic syndrome
     Dosage: 240 MICROGRAM, UNK
     Route: 058
     Dates: start: 201502, end: 201502
  2. CARBOCYSTEINE [Concomitant]
     Active Substance: CARBOCYSTEINE
     Indication: Product used for unknown indication
     Dosage: UNK
     Route: 048
  3. OMEPRAZOLE [Concomitant]
     Active Substance: OMEPRAZOLE
     Indication: Product used for unknown indication
     Dosage: UNK
     Route: 048

REACTIONS (1)
  - Myelodysplastic syndrome [Fatal]

NARRATIVE: CASE EVENT DATE: 20150201
